FAERS Safety Report 6962425-X (Version None)
Quarter: 2010Q3

REPORT INFORMATION
  Report Type: 
  Country: None (occurrence: None)
  Receive Date: 20100902
  Receipt Date: 20100820
  Transmission Date: 20110219
  Serious: Yes (Other)
  Sender: FDA-Public Use
  Company Number: US-SANOFI-AVENTIS-2010SA050446

PATIENT
  Sex: Male

DRUGS (4)
  1. LOVENOX [Suspect]
     Route: 058
     Dates: start: 20090101
  2. LOVENOX [Suspect]
     Indication: PULMONARY EMBOLISM
     Route: 058
     Dates: start: 20090101
  3. MUSCLE RELAXANTS [Concomitant]
     Route: 065
     Dates: start: 20100801
  4. ANALGESICS [Concomitant]
     Route: 065
     Dates: start: 20100801

REACTIONS (1)
  - INTERVERTEBRAL DISC DISORDER [None]
